FAERS Safety Report 12480833 (Version 1)
Quarter: 2016Q2

REPORT INFORMATION
  Report Type: Other
  Country: DE (occurrence: DE)
  Receive Date: 20160620
  Receipt Date: 20160620
  Transmission Date: 20160815
  Serious: Yes (Congenital Anomaly, Other)
  Sender: FDA-Public Use
  Company Number: DE-LUPIN PHARMACEUTICALS INC.-E2B_00005621

PATIENT
  Age: 1 Day
  Sex: Female
  Weight: 2.85 kg

DRUGS (1)
  1. LAMOTRIGINE. [Suspect]
     Active Substance: LAMOTRIGINE
     Indication: DEPRESSION
     Dosage: 50-100 MG
     Route: 064
     Dates: start: 20150620, end: 20160226

REACTIONS (5)
  - Hyperbilirubinaemia neonatal [Recovered/Resolved]
  - Premature baby [Unknown]
  - Congenital skin dimples [Unknown]
  - Bradycardia neonatal [Recovered/Resolved]
  - Foetal exposure during pregnancy [Unknown]

NARRATIVE: CASE EVENT DATE: 20160226
